FAERS Safety Report 9251330 (Version 2)
Quarter: 2013Q2

REPORT INFORMATION
  Report Type: Spontaneous
  Country: US (occurrence: US)
  Receive Date: 20130423
  Receipt Date: 20130530
  Transmission Date: 20140414
  Serious: Yes (Other)
  Sender: FDA-Public Use
  Company Number: US-RB-052476-13

PATIENT
  Sex: Female

DRUGS (2)
  1. SUBOXONE FILM [Suspect]
     Indication: DRUG DEPENDENCE
     Dosage: SUBOXONE FILM
     Route: 065
     Dates: start: 20120530, end: 20130310
  2. SUBOXONE FILM [Suspect]
     Dosage: SUBOXONE FILM
     Route: 065
     Dates: start: 20130311

REACTIONS (1)
  - Convulsion [Unknown]
